FAERS Safety Report 9007258 (Version 1)
Quarter: 2013Q1

REPORT INFORMATION
  Report Type: Spontaneous
  Country: US (occurrence: US)
  Receive Date: 20130110
  Receipt Date: 20130110
  Transmission Date: 20140127
  Serious: Yes (Death)
  Sender: FDA-Public Use
  Company Number: US-PFIZER INC-2013004522

PATIENT
  Age: 52 Year
  Sex: Male

DRUGS (4)
  1. DEXTROMETHORPHAN [Suspect]
  2. COCAINE [Suspect]
  3. DOXYLAMINE [Suspect]
  4. LAXATIVES [Suspect]

REACTIONS (3)
  - Drug abuse [Fatal]
  - Cardiac arrest [Fatal]
  - Respiratory arrest [Fatal]
